FAERS Safety Report 7724815-7 (Version None)
Quarter: 2011Q3

REPORT INFORMATION
  Report Type: 
  Country: None (occurrence: None)
  Receive Date: 20110901
  Receipt Date: 20110830
  Transmission Date: 20111222
  Serious: Yes (Life-Threatening, Hospitalization, Other)
  Sender: FDA-Public Use
  Company Number: JP-PFIZER INC-2011176887

PATIENT
  Age: 58 Year
  Sex: Male
  Weight: 42 kg

DRUGS (9)
  1. VARENICLINE TARTRATE [Suspect]
     Dosage: 0.5 MG, 2X/DAY
     Route: 048
     Dates: start: 20110520, end: 20110523
  2. GLYCYRON [Concomitant]
     Dosage: 50 MG, 3X/DAY
     Route: 048
  3. RABEPRAZOLE SODIUM [Concomitant]
     Dosage: 20 MG, 1X/DAY
     Route: 048
  4. VARENICLINE TARTRATE [Suspect]
     Indication: SMOKING CESSATION THERAPY
     Dosage: 0.5 MG, 1X/DAY
     Route: 048
     Dates: start: 20110517, end: 20110519
  5. FOIPAN [Concomitant]
     Indication: OESOPHAGITIS
     Dosage: 100 MG, 3X/DAY
     Route: 048
     Dates: start: 20110617, end: 20110624
  6. LENDEM [Suspect]
     Dosage: 0.25 MG, 1X/DAY
     Route: 048
  7. VARENICLINE TARTRATE [Suspect]
     Dosage: 1 MG, 2X/DAY
     Route: 048
     Dates: start: 20110524, end: 20110601
  8. URDESTON [Concomitant]
     Dosage: 100 MG, 3X/DAY
     Route: 048
  9. VITAMEDIN CAPSULE [Concomitant]
     Dosage: UNK
     Route: 048

REACTIONS (12)
  - DIARRHOEA [None]
  - DISCOMFORT [None]
  - SPLENECTOMY [None]
  - ROAD TRAFFIC ACCIDENT [None]
  - ALCOHOLISM [None]
  - DECREASED APPETITE [None]
  - SPINAL COMPRESSION FRACTURE [None]
  - DEPRESSION [None]
  - CHOLECYSTECTOMY [None]
  - STRESS [None]
  - FEELING ABNORMAL [None]
  - SUICIDAL IDEATION [None]
